FAERS Safety Report 24355211 (Version 1)
Quarter: 2024Q3

REPORT INFORMATION
  Report Type: Report from Study
  Country: US (occurrence: US)
  Receive Date: 20240924
  Receipt Date: 20240924
  Transmission Date: 20241016
  Serious: Yes (Hospitalization)
  Sender: ABBVIE
  Company Number: US-ABBVIE-5930549

PATIENT
  Age: 60 Year
  Sex: Male

DRUGS (1)
  1. SKYRIZI [Suspect]
     Active Substance: RISANKIZUMAB-RZAA
     Indication: Psoriasis
     Route: 058
     Dates: start: 20201012

REACTIONS (3)
  - Arthropod sting [Recovering/Resolving]
  - Arthropod sting [Recovered/Resolved]
  - Allergy to arthropod sting [Unknown]

NARRATIVE: CASE EVENT DATE: 20240915
